FAERS Safety Report 9419009 (Version 3)
Quarter: 2013Q3

REPORT INFORMATION
  Report Type: Spontaneous
  Country: BR (occurrence: BR)
  Receive Date: 20130725
  Receipt Date: 20130903
  Transmission Date: 20140515
  Serious: Yes (Other)
  Sender: FDA-Public Use
  Company Number: PHHY2013BR045107

PATIENT
  Age: 50 Year
  Sex: Male

DRUGS (10)
  1. RITALINA [Suspect]
     Indication: ATTENTION DEFICIT/HYPERACTIVITY DISORDER
     Dosage: 4 DF, 4 TABLETS DAILY
     Dates: start: 2001
  2. RITALINA [Suspect]
     Dosage: 2 DF, BID (IN THE MORNING AND IN THE AFTERNOON)
     Dates: start: 2002
  3. RITALINA [Suspect]
     Dosage: UNK UKN, UNK
     Dates: end: 201307
  4. RITALINA [Suspect]
     Dosage: 2 DF, BID (INTHE MORNING AND IN THE AFTERNOON)
     Dates: start: 201308
  5. OMEPRAZOLE [Suspect]
     Indication: ABDOMINAL DISCOMFORT
     Dosage: UNK UKN, UNK
  6. FLUOXETINE [Suspect]
     Indication: ANTIDEPRESSANT THERAPY
     Dosage: UNK UKN, UNK
  7. ALPRAZOLAM [Suspect]
     Indication: ANXIOLYTIC THERAPY
     Dosage: UNK UKN, UNK
  8. ANALGESICS [Concomitant]
     Dosage: UNK UKN, UNK
  9. ANTI ALLERGIC AGENTS [Concomitant]
     Dosage: UNK UKN, UNK
  10. ANTIINFLAMMATORY AGENTS [Concomitant]
     Dosage: UNK UKN, UNK

REACTIONS (26)
  - Suicide attempt [Unknown]
  - Suicidal ideation [Unknown]
  - Panic disorder [Unknown]
  - Myocardial infarction [Unknown]
  - Spinal osteoarthritis [Unknown]
  - Pain [Unknown]
  - Road traffic accident [Unknown]
  - Drug effect increased [Unknown]
  - Poor quality sleep [Unknown]
  - Depression [Unknown]
  - Withdrawal syndrome [Unknown]
  - Drug ineffective [Unknown]
  - Hypothyroidism [Unknown]
  - Gastritis [Unknown]
  - Claustrophobia [Unknown]
  - Hypertension [Unknown]
  - Fatigue [Unknown]
  - Obesity [Unknown]
  - Temperature intolerance [Unknown]
  - Photosensitivity reaction [Unknown]
  - Fibromyalgia [Unknown]
  - Polymyositis [Unknown]
  - Eczema nummular [Unknown]
  - Dermatitis [Unknown]
  - Agoraphobia [Unknown]
  - Asthenia [Unknown]
